FAERS Safety Report 13686845 (Version 1)
Quarter: 2017Q2

REPORT INFORMATION
  Report Type: Spontaneous
  Country: IT (occurrence: IT)
  Receive Date: 20170623
  Receipt Date: 20170623
  Transmission Date: 20170830
  Serious: Yes (Hospitalization)
  Sender: FDA-Public Use
  Company Number: IT-FRESENIUS KABI-FK201705204

PATIENT
  Age: 6 Year
  Sex: Male
  Weight: 33 kg

DRUGS (2)
  1. PROPOFOL (MANUFACTURER UNKNOWN) [Suspect]
     Active Substance: PROPOFOL
     Indication: SEDATION
     Route: 042
     Dates: start: 20170531
  2. CISATRACURIO SANDOZ [Concomitant]
     Indication: NEUROMUSCULAR BLOCKING THERAPY
     Route: 042
     Dates: start: 20170525, end: 20170601

REACTIONS (2)
  - Acute kidney injury [Recovering/Resolving]
  - Myoglobin blood increased [Recovering/Resolving]

NARRATIVE: CASE EVENT DATE: 20170601
